FAERS Safety Report 10135852 (Version 1)
Quarter: 2014Q2

REPORT INFORMATION
  Report Type: Spontaneous
  Country: US (occurrence: US)
  Receive Date: 20140429
  Receipt Date: 20140429
  Transmission Date: 20141212
  Serious: Yes (Other)
  Sender: FDA-Public Use
  Company Number: US-AMGEN-USASP2014029657

PATIENT
  Age: 85 Year
  Sex: Male

DRUGS (4)
  1. XGEVA [Suspect]
     Indication: PROPHYLAXIS
     Dosage: UNK
     Route: 065
     Dates: start: 2013
  2. XGEVA [Suspect]
     Indication: METASTASES TO BONE
  3. LUPRON [Concomitant]
     Dosage: UNK UNK, Q4MO
  4. ZYTIGA [Concomitant]

REACTIONS (9)
  - Aphagia [Unknown]
  - Osteonecrosis of jaw [Unknown]
  - Feeling abnormal [Unknown]
  - Tooth disorder [Unknown]
  - Pain [Unknown]
  - Gingivitis [Recovering/Resolving]
  - Oral disorder [Unknown]
  - Mastication disorder [Unknown]
  - Pyrexia [Unknown]
